FAERS Safety Report 10342276 (Version 2)
Quarter: 2014Q3

REPORT INFORMATION
  Report Type: Other
  Country: US (occurrence: US)
  Receive Date: 20140725
  Receipt Date: 20140909
  Transmission Date: 20150326
  Serious: Yes (Death, Hospitalization, Other)
  Sender: FDA-Public Use
  Company Number: US-SHIRE-US201404219

PATIENT
  Age: 76 Year
  Sex: Male
  Weight: 65.76 kg

DRUGS (5)
  1. LIALDA [Suspect]
     Active Substance: MESALAMINE
     Indication: COLITIS
     Dosage: 4.8 G (FOUR 1.2 G), OTHER (A DAY)
     Route: 048
     Dates: end: 20140529
  2. OMEPRAZOLE. [Concomitant]
     Active Substance: OMEPRAZOLE
     Indication: PRODUCT USED FOR UNKNOWN INDICATION
     Dosage: 20 MG, 1X/DAY:QD
     Route: 048
  3. GLIPIZIDE. [Concomitant]
     Active Substance: GLIPIZIDE
     Indication: DIABETES MELLITUS
     Dosage: UNK, UNKNOWN
     Route: 048
  4. DILTIAZEM [Concomitant]
     Active Substance: DILTIAZEM
     Indication: HYPERTENSION
     Dosage: UNK, 1X/DAY:QD
     Route: 048
  5. LIALDA [Suspect]
     Active Substance: MESALAMINE
     Dosage: 4.8 G (FOUR 1.2 G), OTHER (A DAY)
     Route: 048
     Dates: start: 20140613

REACTIONS (6)
  - Diarrhoea haemorrhagic [Unknown]
  - Medication residue present [Recovered/Resolved]
  - Yellow skin [Unknown]
  - Abnormal loss of weight [Unknown]
  - Product quality issue [Unknown]
  - Pancreatic carcinoma [Fatal]

NARRATIVE: CASE EVENT DATE: 2014
